FAERS Safety Report 16984060 (Version 1)
Quarter: 2019Q4

REPORT INFORMATION
  Report Type: Other
  Country: US (occurrence: US)
  Receive Date: 20191101
  Receipt Date: 20191101
  Transmission Date: 20200122
  Serious: Yes (Hospitalization, Other)
  Sender: FDA-Public Use
  Company Number: US-MSN LABORATORIES PRIVATE LIMITED-2076338

PATIENT
  Age: 77 Year
  Sex: Male

DRUGS (1)
  1. ATORVASTATIN CALCIUM. [Suspect]
     Active Substance: ATORVASTATIN CALCIUM
     Indication: PRODUCT USED FOR UNKNOWN INDICATION
     Route: 065

REACTIONS (7)
  - Hypercapnia [Recovering/Resolving]
  - Diaphragm muscle weakness [Recovering/Resolving]
  - Dyspnoea [Recovering/Resolving]
  - Muscular weakness [Recovering/Resolving]
  - Atelectasis [Recovering/Resolving]
  - Dysphonia [Recovering/Resolving]
  - Blood creatine phosphokinase increased [Recovering/Resolving]
